FAERS Safety Report 23177396 (Version 2)
Quarter: 2023Q4

REPORT INFORMATION
  Report Type: Spontaneous
  Country: MX (occurrence: MX)
  Receive Date: 20231113
  Receipt Date: 20231219
  Transmission Date: 20240109
  Serious: Yes (Death, Other)
  Sender: FDA-Public Use
  Company Number: MX-002147023-NVSC2023MX241091

PATIENT
  Age: 90 Year
  Sex: Female
  Weight: 50 kg

DRUGS (5)
  1. EXELON [Suspect]
     Active Substance: RIVASTIGMINE TARTRATE
     Indication: Product used for unknown indication
     Dosage: 4.6 MG, QD, PATCH 5 (CM2 ), (1 PATCH EVERY 24 HOURS)
     Route: 062
     Dates: start: 20170715, end: 20230526
  2. Atemperator [Concomitant]
     Indication: Product used for unknown indication
     Dosage: 1.5 ML
     Route: 065
     Dates: start: 2022
  3. Atemperator [Concomitant]
     Indication: Product used for unknown indication
     Dosage: UNK
     Route: 065
     Dates: start: 201712
  4. UNSPECIFIED INGREDIENT [Concomitant]
     Active Substance: UNSPECIFIED INGREDIENT
     Indication: Product used for unknown indication
     Route: 065
  5. REXULTI [Concomitant]
     Active Substance: BREXPIPRAZOLE
     Indication: Product used for unknown indication
     Dosage: 0.5 MG (PILL)
     Route: 065

REACTIONS (7)
  - Death [Fatal]
  - Blood glucose increased [Unknown]
  - Osteoporosis [Unknown]
  - Dysphagia [Unknown]
  - Urinary tract infection [Unknown]
  - Wrong technique in product usage process [Recovered/Resolved]
  - Product prescribing error [Recovered/Resolved]

NARRATIVE: CASE EVENT DATE: 20171201
